FAERS Safety Report 7032122-3 (Version None)
Quarter: 2010Q4

REPORT INFORMATION
  Report Type: 
  Country: None (occurrence: None)
  Receive Date: 20101007
  Receipt Date: 20091209
  Transmission Date: 20110411
  Serious: Yes (Death)
  Sender: FDA-Public Use
  Company Number: BR-BRISTOL-MYERS SQUIBB COMPANY-14892319

PATIENT
  Age: 72 Year
  Sex: Male
  Weight: 36 kg

DRUGS (3)
  1. CETUXIMAB [Suspect]
     Indication: NON-SMALL CELL LUNG CANCER
     Dosage: REC INF: 02DEC09; DISCONITNUED 5MG/ML
     Route: 042
     Dates: start: 20091019, end: 20091202
  2. CISPLATIN [Suspect]
     Indication: NON-SMALL CELL LUNG CANCER
     Dosage: REC INF: 02DEC09 (44D) DAY 1 OF 21 CYCLE
     Route: 042
     Dates: start: 20091019
  3. GEMCITABINE [Suspect]
     Indication: NON-SMALL CELL LUNG CANCER
     Dosage: ON DAYS 1, 18 OF 21 DAY CYCLE REC INF: 02DEC09 (44D)
     Route: 042
     Dates: start: 20091019

REACTIONS (1)
  - PULMONARY EMBOLISM [None]
